FAERS Safety Report 18624856 (Version 2)
Quarter: 2021Q1

REPORT INFORMATION
  Report Type: Spontaneous
  Country: US (occurrence: US)
  Receive Date: 20201216
  Receipt Date: 20210210
  Transmission Date: 20210419
  Serious: Yes (Other)
  Sender: FDA-Public Use
  Company Number: US-BAYER-2020-272005

PATIENT
  Sex: Female

DRUGS (5)
  1. KOGENATE FS [Suspect]
     Active Substance: ANTIHEMOPHILIC FACTOR, HUMAN RECOMBINANT
     Dosage: 1500 U, QD; INFUSE ~1500 U (+/? 10%) INTO THE VEIN DAILY AS NEEDED (FOR BREAKTHROUGH BLEEDING OR IN
     Route: 042
  2. AZELASTINE HYDROCHLORIDE. [Concomitant]
     Active Substance: AZELASTINE HYDROCHLORIDE
     Indication: FACTOR VIII DEFICIENCY
  3. KOGENATE FS [Suspect]
     Active Substance: ANTIHEMOPHILIC FACTOR, HUMAN RECOMBINANT
     Dosage: 4 DF
     Route: 042
  4. KOGENATE FS [Suspect]
     Active Substance: ANTIHEMOPHILIC FACTOR, HUMAN RECOMBINANT
     Dosage: 1500 U, QD; INFUSE ~1500 U (+/? 10%) INTO THE VEIN DAILY AS NEEDED (FOR BREAKTHROUGH BLEEDING OR IN
     Route: 042
     Dates: start: 201702
  5. AZELASTINE HYDROCHLORIDE. [Concomitant]
     Active Substance: AZELASTINE HYDROCHLORIDE
     Indication: METRORRHAGIA

REACTIONS (3)
  - Haemarthrosis [None]
  - Fall [None]
  - Oral surgery [None]
